FAERS Safety Report 16652502 (Version 2)
Quarter: 2019Q3

REPORT INFORMATION
  Report Type: Spontaneous
  Country: RO (occurrence: RO)
  Receive Date: 20190731
  Receipt Date: 20190807
  Transmission Date: 20191004
  Serious: Yes (Other)
  Sender: FDA-Public Use
  Company Number: RO-PFIZER INC-2019319348

PATIENT
  Age: 50 Year
  Sex: Female

DRUGS (2)
  1. DOSTINEX [Suspect]
     Active Substance: CABERGOLINE
     Dosage: 0.5 MG, 3-4 TABLETS, HALF ON MONDAY AND HALF ON THURSDAY
     Route: 048
     Dates: start: 201809
  2. DOSTINEX [Suspect]
     Active Substance: CABERGOLINE
     Indication: BLOOD PROLACTIN INCREASED
     Dosage: UNK
     Route: 048
     Dates: start: 2000

REACTIONS (13)
  - Blood prolactin decreased [Unknown]
  - Crying [Unknown]
  - Haematoma [Unknown]
  - Hypopituitarism [Unknown]
  - Metal poisoning [Unknown]
  - Weight decreased [Unknown]
  - Immune system disorder [Unknown]
  - Behaviour disorder [Unknown]
  - Hepatitis B [Unknown]
  - Depression [Unknown]
  - Prescription drug used without a prescription [Unknown]
  - Bone disorder [Unknown]
  - Nervous system disorder [Unknown]
